FAERS Safety Report 20776189 (Version 1)
Quarter: 2022Q2

REPORT INFORMATION
  Report Type: Spontaneous
  Country: US (occurrence: US)
  Receive Date: 20220502
  Receipt Date: 20220502
  Transmission Date: 20220721
  Serious: No
  Sender: FDA-Public Use
  Company Number: US-PFIZER INC-202101277036

PATIENT
  Age: 65 Year
  Sex: Male

DRUGS (1)
  1. PREGABALIN [Suspect]
     Active Substance: PREGABALIN
     Indication: Diabetic neuropathy
     Dosage: UNK

REACTIONS (5)
  - Hypersensitivity [Unknown]
  - Alopecia [Unknown]
  - Tremor [Unknown]
  - Fall [Unknown]
  - Pain [Unknown]
